FAERS Safety Report 9915595 (Version 2)
Quarter: 2014Q2

REPORT INFORMATION
  Report Type: Spontaneous
  Country: FR (occurrence: FR)
  Receive Date: 20140221
  Receipt Date: 20140625
  Transmission Date: 20141212
  Serious: Yes (Other)
  Sender: FDA-Public Use
  Company Number: FR-AMGEN-FRASP2014012193

PATIENT
  Age: 44 Year
  Sex: Female

DRUGS (3)
  1. ENBREL [Suspect]
     Indication: RHEUMATOID ARTHRITIS
     Dosage: 50 MG, WEEKLY
     Route: 058
     Dates: start: 201202, end: 201309
  2. CORTISOL                           /00028601/ [Concomitant]
     Dosage: 4 MG, UNK
  3. CORTANCYL [Concomitant]
     Dosage: 10 MG, 1X/DAY
     Route: 048
     Dates: start: 201107

REACTIONS (4)
  - Eye disorder [Recovered/Resolved]
  - Headache [Recovered/Resolved]
  - Nystagmus [Recovered/Resolved]
  - Multiple sclerosis relapse [Recovered/Resolved]
